FAERS Safety Report 10689737 (Version 2)
Quarter: 2015Q2

REPORT INFORMATION
  Report Type: Spontaneous
  Country: US (occurrence: None)
  Receive Date: 20141231
  Receipt Date: 20150513
  Transmission Date: 20150821
  Serious: Yes (Life-Threatening, Hospitalization, Other)
  Sender: FDA-Public Use
  Company Number: 1224850-2014-00004

PATIENT
  Age: 51 Year
  Sex: Male

DRUGS (4)
  1. FRESENIUS PERITONEAL DIALYSIS SOLUTION [Concomitant]
  2. LIBERTY CYCLER [Concomitant]
     Active Substance: DEVICE
  3. PHOSLO [Suspect]
     Active Substance: CALCIUM ACETATE
     Indication: HYPERPHOSPHATAEMIA
  4. LIBERTY CASSETTE [Concomitant]

REACTIONS (4)
  - Inadequate aseptic technique in use of product [None]
  - Peritoneal dialysis complication [None]
  - Staphylococcal infection [None]
  - Peritonitis bacterial [None]

NARRATIVE: CASE EVENT DATE: 20140130
